FAERS Safety Report 4633008-1 (Version None)
Quarter: 2005Q2

REPORT INFORMATION
  Report Type: 
  Country: None (occurrence: None)
  Receive Date: 20050412
  Receipt Date: 20050401
  Transmission Date: 20051028
  Serious: Yes (Death)
  Sender: FDA-Public Use
  Company Number: US-JNJFOC-20050400767

PATIENT
  Age: 50 Year
  Sex: Male

DRUGS (2)
  1. SPORANOX [Suspect]
     Dosage: PROTOCOL: DAYS 3-14
     Route: 042
  2. SPORANOX [Suspect]
     Indication: ANTIFUNGAL PROPHYLAXIS
     Dosage: PROTOCOL: LOADING DOSE DAYS 1-2
     Route: 042

REACTIONS (1)
  - STENOTROPHOMONAS SEPSIS [None]
